FAERS Safety Report 17800918 (Version 2)
Quarter: 2020Q2

REPORT INFORMATION
  Report Type: Spontaneous
  Country: US (occurrence: US)
  Receive Date: 20200518
  Receipt Date: 20200528
  Transmission Date: 20200714
  Serious: Yes (Other)
  Sender: FDA-Public Use
  Company Number: US-009507513-2005USA005067

PATIENT
  Age: 67 Year
  Sex: Male

DRUGS (4)
  1. PROVENTIL [Suspect]
     Active Substance: ALBUTEROL
     Dosage: 1 TO 2 PUFFS EVERY 4 TO 6 HOURS
     Route: 055
     Dates: start: 202002, end: 202003
  2. PROVENTIL [Suspect]
     Active Substance: ALBUTEROL
     Dosage: 1 TO 2 PUFFS EVERY 4 TO 6 HOURS
     Route: 055
     Dates: start: 2020
  3. PROVENTIL [Suspect]
     Active Substance: ALBUTEROL
     Indication: OXYGEN SATURATION DECREASED
     Dosage: 1 TO 2 PUFFS EVERY 4 TO 6 HOURS
     Route: 055
     Dates: start: 202002
  4. PROVENTIL [Suspect]
     Active Substance: ALBUTEROL
     Dosage: 1 TO 2 PUFFS EVERY 4 TO 6 HOURS
     Route: 055
     Dates: start: 201905

REACTIONS (5)
  - Pneumonia [Unknown]
  - COVID-19 [Recovering/Resolving]
  - Poor quality device used [Unknown]
  - Product use in unapproved indication [Unknown]
  - Product quality issue [Unknown]

NARRATIVE: CASE EVENT DATE: 201905
